FAERS Safety Report 17763565 (Version 2)
Quarter: 2020Q2

REPORT INFORMATION
  Report Type: Spontaneous
  Country: IT (occurrence: IT)
  Receive Date: 20200509
  Receipt Date: 20200529
  Transmission Date: 20200714
  Serious: Yes (Hospitalization)
  Sender: FDA-Public Use
  Company Number: IT-TEVA-2020-IT-1231867

PATIENT
  Age: 76 Year
  Sex: Male

DRUGS (12)
  1. EUTIROX [Concomitant]
     Active Substance: LEVOTHYROXINE SODIUM
     Indication: HYPOTHYROIDISM
  2. FOLIFILL [Concomitant]
  3. PLAQUENIL [Suspect]
     Active Substance: HYDROXYCHLOROQUINE SULFATE
     Indication: CORONAVIRUS INFECTION
     Dosage: 400 MG
     Route: 048
     Dates: start: 20200322, end: 20200327
  4. RITONAVIR SANDOZ [Suspect]
     Active Substance: RITONAVIR
     Indication: CORONAVIRUS INFECTION
     Dosage: 100 MG
     Route: 048
     Dates: start: 20200322, end: 20200402
  5. LASIX [Concomitant]
     Active Substance: FUROSEMIDE
  6. CEFTRIAXONE MYLAN GENERICS 2000 MG POLVERE PER SOLUZIONE PER INFUSIONE [Concomitant]
     Indication: CORONAVIRUS INFECTION
     Dosage: 1 DF
     Route: 048
     Dates: start: 20200322, end: 20200329
  7. URBASON SOLUBILE [Concomitant]
     Active Substance: METHYLPREDNISOLONE SODIUM SUCCINATE
     Indication: CORONAVIRUS INFECTION
     Dosage: 1 DF
     Route: 042
     Dates: start: 20200324, end: 20200421
  8. DARUNAVIR [Suspect]
     Active Substance: DARUNAVIR
     Indication: CORONAVIRUS INFECTION
     Dosage: 800 MG
     Route: 048
     Dates: start: 20200322, end: 20200402
  9. CLEXANE T [Suspect]
     Active Substance: ENOXAPARIN SODIUM
     Indication: THROMBOSIS PROPHYLAXIS
     Dosage: 6000 KU
     Route: 058
     Dates: start: 20200322, end: 20200413
  10. AZITROMICINA TEVA ITALIA (AZITHROMYCIN) [Suspect]
     Active Substance: AZITHROMYCIN
     Indication: CORONAVIRUS INFECTION
     Dosage: 500 MG
     Route: 048
     Dates: start: 20200322, end: 20200329
  11. NORVASC [Suspect]
     Active Substance: AMLODIPINE BESYLATE
     Indication: HYPERTENSION
     Dosage: 10 MG
     Route: 048
     Dates: start: 20200326, end: 20200407
  12. OMEPRAZOLE. [Concomitant]
     Active Substance: OMEPRAZOLE

REACTIONS (4)
  - Rash pustular [Recovering/Resolving]
  - Acute generalised exanthematous pustulosis [Recovering/Resolving]
  - Erythema [Recovering/Resolving]
  - Off label use [Recovering/Resolving]

NARRATIVE: CASE EVENT DATE: 20200413
